FAERS Safety Report 16778549 (Version 2)
Quarter: 2019Q3

REPORT INFORMATION
  Report Type: Spontaneous
  Country: US (occurrence: US)
  Receive Date: 20190906
  Receipt Date: 20190911
  Transmission Date: 20191005
  Serious: Yes (Life-Threatening, Hospitalization, Other)
  Sender: FDA-Public Use
  Company Number: US-CIPLA LTD.-2019US06172

PATIENT

DRUGS (1)
  1. CITALOPRAM [Suspect]
     Active Substance: CITALOPRAM HYDROBROMIDE
     Dosage: UNK, INGESTED ROUGHLY 180 TABLETS IN TOTAL, AT APPROXIMATELY 1700
     Route: 048

REACTIONS (6)
  - Pulseless electrical activity [Recovered/Resolved]
  - Seizure [Recovered/Resolved]
  - Overdose [Unknown]
  - Hypotension [Recovered/Resolved]
  - Cardiotoxicity [Recovered/Resolved]
  - Bradycardia [Recovered/Resolved]
